FAERS Safety Report 8161333-9 (Version None)
Quarter: 2012Q1

REPORT INFORMATION
  Report Type: 
  Country: None (occurrence: None)
  Receive Date: 20120224
  Receipt Date: 20120216
  Transmission Date: 20120608
  Serious: Yes (Other)
  Sender: FDA-Public Use
  Company Number: FR-US-EMD SERONO, INC.-7099154

PATIENT
  Sex: Male

DRUGS (2)
  1. REBIF [Suspect]
     Indication: MULTIPLE SCLEROSIS
     Route: 058
     Dates: start: 20090301, end: 20111001
  2. AVONEX [Suspect]
     Indication: MULTIPLE SCLEROSIS
     Route: 058
     Dates: start: 20010901, end: 20080701

REACTIONS (4)
  - INJECTION SITE NECROSIS [None]
  - MUSCLE CONTRACTIONS INVOLUNTARY [None]
  - VASCULITIS [None]
  - MYOSITIS [None]
